FAERS Safety Report 20123083 (Version 1)
Quarter: 2021Q4

REPORT INFORMATION
  Report Type: Spontaneous
  Country: US (occurrence: US)
  Receive Date: 20211129
  Receipt Date: 20211129
  Transmission Date: 20220303
  Serious: Yes (Hospitalization)
  Sender: FDA-Public Use
  Company Number: US-UCBSA-2020042003

PATIENT
  Sex: Male
  Weight: 117 kg

DRUGS (7)
  1. VIMPAT [Suspect]
     Active Substance: LACOSAMIDE
     Indication: Seizure
     Dosage: 100 MILLIGRAM, 2X/DAY (BID)
     Route: 048
     Dates: start: 2016, end: 2016
  2. VIMPAT [Suspect]
     Active Substance: LACOSAMIDE
     Dosage: 2 TABLETS OF 100 MG AND 1 TABLET OF 50 MG TWICE DAILY
     Route: 048
     Dates: start: 2016, end: 20201001
  3. VIMPAT [Suspect]
     Active Substance: LACOSAMIDE
     Dosage: 50 MG STRENGTH
     Dates: start: 202010, end: 202010
  4. TOPIRAMATE [Concomitant]
     Active Substance: TOPIRAMATE
     Indication: Seizure
     Dosage: 100 MILLIGRAM, 2X/DAY (BID)
     Route: 048
     Dates: start: 2016
  5. CLONAZEPAM [Concomitant]
     Active Substance: CLONAZEPAM
     Indication: Seizure
     Dosage: 1 MILLIGRAM, 2X/DAY (BID)
     Route: 048
  6. OMEPRAZOLE [Concomitant]
     Active Substance: OMEPRAZOLE
     Indication: Gastrooesophageal reflux disease
     Dosage: 40 MILLIGRAM, 2X/DAY (BID)
     Route: 048
     Dates: start: 2003
  7. SUCRALFATE [Concomitant]
     Active Substance: SUCRALFATE
     Indication: Oesophageal carcinoma
     Dosage: 1 GRAM, 4X/DAY (QID)
     Route: 048
     Dates: start: 2007

REACTIONS (6)
  - Seizure [Recovered/Resolved]
  - Blood pressure increased [Recovered/Resolved]
  - Overdose [Unknown]
  - Product availability issue [Unknown]
  - Therapy interrupted [Unknown]
  - Insurance issue [Unknown]

NARRATIVE: CASE EVENT DATE: 20160101
